FAERS Safety Report 12433212 (Version 1)
Quarter: 2016Q2

REPORT INFORMATION
  Report Type: Spontaneous
  Country: US (occurrence: US)
  Receive Date: 20160603
  Receipt Date: 20160603
  Transmission Date: 20160815
  Serious: Yes (Hospitalization, Other)
  Sender: FDA-Public Use
  Company Number: US-ELI_LILLY_AND_COMPANY-US201605009928

PATIENT
  Age: 66 Year
  Sex: Female

DRUGS (12)
  1. LISINOPRIL. [Concomitant]
     Active Substance: LISINOPRIL
  2. SIMVASTATIN. [Concomitant]
     Active Substance: SIMVASTATIN
  3. FUROSEMIDE. [Concomitant]
     Active Substance: FUROSEMIDE
  4. LEVAQUIN [Concomitant]
     Active Substance: LEVOFLOXACIN
  5. AMBRISENTAN [Suspect]
     Active Substance: AMBRISENTAN
     Indication: PULMONARY HYPERTENSION
     Dosage: 5 MG, QD
     Route: 065
     Dates: start: 20160412
  6. VENLAFAXINE [Concomitant]
     Active Substance: VENLAFAXINE HYDROCHLORIDE
  7. MULTI VITAMIN [Concomitant]
     Active Substance: VITAMINS
  8. METFORMIN [Concomitant]
     Active Substance: METFORMIN HYDROCHLORIDE
  9. ADCIRCA [Suspect]
     Active Substance: TADALAFIL
     Indication: PRODUCT USED FOR UNKNOWN INDICATION
     Dosage: UNK, UNKNOWN
     Route: 065
  10. CALCIUM +D                         /00944201/ [Concomitant]
     Active Substance: CALCIUM CARBONATE\CHOLECALCIFEROL
  11. HYDROCODONE [Concomitant]
     Active Substance: HYDROCODONE
  12. GLIPIZIDE. [Concomitant]
     Active Substance: GLIPIZIDE

REACTIONS (8)
  - Tremor [Unknown]
  - Muscular weakness [Unknown]
  - Bronchitis [Unknown]
  - Chills [Unknown]
  - Headache [Recovered/Resolved]
  - Rash pruritic [Not Recovered/Not Resolved]
  - Oedema [Unknown]
  - Weight increased [Unknown]

NARRATIVE: CASE EVENT DATE: 20160418
